FAERS Safety Report 4818701-X (Version None)
Quarter: 2005Q4

REPORT INFORMATION
  Report Type: 
  Country: None (occurrence: None)
  Receive Date: 20051102
  Receipt Date: 20050817
  Transmission Date: 20060501
  Serious: Yes (Hospitalization, Disabling)
  Sender: FDA-Public Use
  Company Number: US-MERCK-0508USA03252

PATIENT
  Age: 55 Year
  Sex: Male
  Weight: 90 kg

DRUGS (14)
  1. VIOXX [Suspect]
     Indication: ANKLE FRACTURE
     Route: 048
     Dates: start: 20000516, end: 20040219
  2. VIOXX [Suspect]
     Indication: PAIN
     Route: 048
     Dates: start: 20000516, end: 20040219
  3. ASPIRIN [Concomitant]
     Route: 048
  4. ULTRAM [Concomitant]
     Indication: PAIN
     Route: 048
     Dates: start: 20000516, end: 20000616
  5. TEVETEN [Concomitant]
     Indication: HYPERTENSION
     Route: 048
     Dates: start: 20001104, end: 20040204
  6. DOXAZOSIN MESYLATE [Concomitant]
     Indication: HYPERTENSION
     Route: 048
     Dates: start: 20001104, end: 20040204
  7. GUAIFENEX [Concomitant]
     Route: 065
  8. NIASPAN [Concomitant]
     Indication: BLOOD CHOLESTEROL INCREASED
     Route: 065
  9. AMBIEN [Concomitant]
     Indication: SLEEP DISORDER
     Route: 065
  10. HYDROCHLOROTHIAZIDE [Concomitant]
     Route: 065
  11. ADVICOR [Concomitant]
     Indication: BLOOD CHOLESTEROL INCREASED
     Route: 065
  12. LESCOL [Concomitant]
     Indication: BLOOD CHOLESTEROL INCREASED
     Route: 065
  13. ZETIA [Concomitant]
     Indication: BLOOD CHOLESTEROL INCREASED
     Route: 065
  14. CRESTOR [Concomitant]
     Indication: BLOOD CHOLESTEROL INCREASED
     Route: 065

REACTIONS (4)
  - CEREBRAL ARTERY OCCLUSION [None]
  - DEPRESSION [None]
  - GASTRIC PH DECREASED [None]
  - OSTEOARTHRITIS [None]
